FAERS Safety Report 22139273 (Version 1)
Quarter: 2023Q1

REPORT INFORMATION
  Report Type: Spontaneous
  Country: US (occurrence: US)
  Receive Date: 20230327
  Receipt Date: 20230327
  Transmission Date: 20230418
  Serious: No
  Sender: FDA-Public Use
  Company Number: US-SANOFI-01540111

PATIENT
  Sex: Female

DRUGS (2)
  1. DUPIXENT [Suspect]
     Active Substance: DUPILUMAB
     Indication: Eosinophilic oesophagitis
     Dosage: UNK
  2. DUPIXENT [Suspect]
     Active Substance: DUPILUMAB
     Dosage: UNK, QOW

REACTIONS (5)
  - Weight increased [Unknown]
  - Dermatitis atopic [Unknown]
  - Pustule [Recovering/Resolving]
  - Erythema [Recovering/Resolving]
  - Off label use [Unknown]
